FAERS Safety Report 4724336-X (Version None)
Quarter: 2005Q3

REPORT INFORMATION
  Report Type: 
  Country: None (occurrence: None)
  Receive Date: 20050720
  Receipt Date: 20050720
  Transmission Date: 20060218
  Serious: No
  Sender: FDA-Public Use
  Company Number: None

PATIENT
  Age: 45 Year
  Sex: Female
  Weight: 74.8435 kg

DRUGS (1)
  1. LEVOTHYROXINE [Suspect]
     Indication: HYPOTHYROIDISM
     Dosage: 0.75 MG PO
     Route: 048
     Dates: start: 20040929

REACTIONS (4)
  - DIZZINESS [None]
  - MUSCLE SPASMS [None]
  - PRURITUS [None]
  - SWELLING [None]
